FAERS Safety Report 4404766-6 (Version None)
Quarter: 2004Q3

REPORT INFORMATION
  Report Type: 
  Country: None (occurrence: None)
  Receive Date: 20040720
  Receipt Date: 20040705
  Transmission Date: 20050211
  Serious: No
  Sender: FDA-Public Use
  Company Number: B0337868A

PATIENT
  Age: 30 Year
  Sex: Male

DRUGS (5)
  1. LITHIUM SALT (FORMULATION UNKNOWN) (GENERIC) (LITHIUM SALT) [Suspect]
     Dosage: 1200 MG/PER DAY/UNKNOWN
     Route: 065
  2. OLANZAPINE (FORMULATION UNKNOWN) (OLANZAPINE) [Suspect]
     Dosage: 5MG/PER DAY/UNKNOWN
     Route: 065
  3. HALOPERIDOL [Concomitant]
  4. BENZHEXOL [Concomitant]
  5. SILDENAFIL CITRATE [Concomitant]

REACTIONS (7)
  - AKATHISIA [None]
  - DEPRESSION [None]
  - ERECTILE DYSFUNCTION [None]
  - MUSCLE RIGIDITY [None]
  - PRIAPISM [None]
  - THERAPY NON-RESPONDER [None]
  - TREMOR [None]
